FAERS Safety Report 14235509 (Version 1)
Quarter: 2017Q4

REPORT INFORMATION
  Report Type: Spontaneous
  Country: CA (occurrence: CA)
  Receive Date: 20171129
  Receipt Date: 20171129
  Transmission Date: 20180321
  Serious: Yes (Hospitalization, Other)
  Sender: FDA-Public Use
  Company Number: CA-ASTRAZENECA-2017SF12032

PATIENT
  Age: 585 Month
  Sex: Male
  Weight: 104.3 kg

DRUGS (10)
  1. EXENATIDE. [Concomitant]
     Active Substance: EXENATIDE
  2. KEFLEX [Concomitant]
     Active Substance: CEPHALEXIN
     Route: 048
     Dates: start: 20171031, end: 20171108
  3. FORXIGA [Suspect]
     Active Substance: DAPAGLIFLOZIN
     Indication: TYPE 2 DIABETES MELLITUS
     Route: 048
     Dates: start: 20160830
  4. LINAGLIPTIN/METFORRNIN [Concomitant]
  5. ERTAPENEM. [Concomitant]
     Active Substance: ERTAPENEM SODIUM
     Route: 042
  6. GLYBURIDE. [Concomitant]
     Active Substance: GLYBURIDE
     Indication: TYPE 2 DIABETES MELLITUS
     Route: 048
  7. TRANDOLAPRIL. [Concomitant]
     Active Substance: TRANDOLAPRIL
  8. ROSUVASTATIN. [Concomitant]
     Active Substance: ROSUVASTATIN
  9. INDAPAMIDE. [Concomitant]
     Active Substance: INDAPAMIDE
  10. MAVIK [Concomitant]
     Active Substance: TRANDOLAPRIL
     Indication: HYPERTENSION

REACTIONS (9)
  - Candida infection [Unknown]
  - Wound infection pseudomonas [Unknown]
  - Diabetic foot [Unknown]
  - Toe amputation [Recovering/Resolving]
  - Hypoaesthesia [Unknown]
  - Limb injury [Unknown]
  - Osteomyelitis [Recovered/Resolved]
  - Localised infection [Unknown]
  - Decreased appetite [Unknown]

NARRATIVE: CASE EVENT DATE: 201706
